FAERS Safety Report 7250531-4 (Version None)
Quarter: 2011Q1

REPORT INFORMATION
  Report Type: 
  Country: None (occurrence: None)
  Receive Date: 20110128
  Receipt Date: 20110119
  Transmission Date: 20110831
  Serious: Yes (Hospitalization, Other)
  Sender: FDA-Public Use
  Company Number: PHHY2009CA15583

PATIENT
  Sex: Female

DRUGS (15)
  1. NOVO-PANTOPRAZOLE [Concomitant]
  2. OXAZEPAM [Concomitant]
  3. NOVO-DOCUSATE [Concomitant]
     Dosage: UNK
  4. CYPROHEPTADINE HCL [Concomitant]
     Dosage: UNK
  5. SENNATABS [Concomitant]
  6. SANDOSTATIN LAR [Suspect]
     Dosage: 20 MG, EVERY 3 WEEKS
     Route: 030
     Dates: start: 20100602
  7. NOVO-VENLAFAXINE [Concomitant]
  8. METFORMIN [Concomitant]
  9. SWINE FLU VACCINE, MONOVALENT [Concomitant]
  10. CALCIUM WITH VITAMIN D [Concomitant]
  11. SYNTHROID [Concomitant]
  12. FERROUS SULFATE TAB [Concomitant]
  13. SANDOSTATIN LAR [Suspect]
     Indication: NEUROENDOCRINE TUMOUR
     Dosage: 20 MG, EVERY 4 WEEKS
     Route: 030
     Dates: start: 20070824, end: 20091019
  14. ASAPHEN [Concomitant]
     Dosage: UNK
  15. NOVO-LOPERAMIDE [Concomitant]

REACTIONS (26)
  - TRANSIENT ISCHAEMIC ATTACK [None]
  - BLOOD PRESSURE INCREASED [None]
  - ABDOMINAL PAIN [None]
  - CEREBROVASCULAR ACCIDENT [None]
  - SPEECH DISORDER [None]
  - GENERAL PHYSICAL HEALTH DETERIORATION [None]
  - PAIN IN EXTREMITY [None]
  - HYPOPHAGIA [None]
  - EPISTAXIS [None]
  - GAIT DISTURBANCE [None]
  - ANAEMIA [None]
  - INFLUENZA [None]
  - MALAISE [None]
  - MUSCULAR WEAKNESS [None]
  - NAUSEA [None]
  - VOMITING [None]
  - FATIGUE [None]
  - FEELING ABNORMAL [None]
  - INJECTION SITE PAIN [None]
  - LOSS OF CONSCIOUSNESS [None]
  - MEMORY IMPAIRMENT [None]
  - VISUAL FIELD DEFECT [None]
  - PEDAL PULSE ABNORMAL [None]
  - STRESS [None]
  - DIARRHOEA [None]
  - ASTHENIA [None]
